FAERS Safety Report 12168705 (Version 3)
Quarter: 2016Q2

REPORT INFORMATION
  Report Type: Spontaneous
  Country: IT (occurrence: IT)
  Receive Date: 20160310
  Receipt Date: 20160406
  Transmission Date: 20160815
  Serious: Yes (Other)
  Sender: FDA-Public Use
  Company Number: IT-JNJFOC-20160304491

PATIENT
  Age: 71 Year
  Sex: Male

DRUGS (13)
  1. RIBAVIRIN. [Suspect]
     Active Substance: RIBAVIRIN
     Indication: CHRONIC HEPATITIS C
     Route: 048
     Dates: start: 20151112, end: 20160222
  2. LASIX [Concomitant]
     Active Substance: FUROSEMIDE
     Route: 065
  3. AMOXICILLIN. [Concomitant]
     Active Substance: AMOXICILLIN
  4. SIROLIMUS. [Concomitant]
     Active Substance: SIROLIMUS
     Route: 065
  5. OLYSIO [Suspect]
     Active Substance: SIMEPREVIR
     Indication: CHRONIC HEPATITIS C
     Route: 048
     Dates: start: 20151112, end: 20160222
  6. ZEFFIX [Concomitant]
     Active Substance: LAMIVUDINE
     Route: 065
  7. NIULIVA [Concomitant]
     Route: 065
  8. SOVALDI [Suspect]
     Active Substance: SOFOSBUVIR
     Indication: CHRONIC HEPATITIS C
     Route: 048
     Dates: start: 20151112, end: 20160222
  9. ZESTRIL [Concomitant]
     Active Substance: LISINOPRIL
     Route: 065
  10. LIMPIDEX [Concomitant]
     Active Substance: LANSOPRAZOLE
     Route: 065
  11. DEURSIL [Concomitant]
     Active Substance: URSODIOL
     Route: 065
  12. DIDROGYL [Concomitant]
     Active Substance: CALCIFEDIOL
     Route: 065
  13. DELTACORTENE [Concomitant]
     Active Substance: PREDNISONE
     Route: 065

REACTIONS (3)
  - Product use issue [Unknown]
  - Macroglossia [Recovered/Resolved]
  - Off label use [Unknown]

NARRATIVE: CASE EVENT DATE: 20160222
